FAERS Safety Report 9981440 (Version 1)
Quarter: 2014Q1

REPORT INFORMATION
  Report Type: Spontaneous
  Country: US (occurrence: None)
  Receive Date: 20140306
  Receipt Date: 20140306
  Transmission Date: 20141002
  Serious: No
  Sender: FDA-Public Use
  Company Number: None

PATIENT
  Age: 70 Year
  Sex: Male
  Weight: 86.18 kg

DRUGS (1)
  1. BETAMETHASONE DIPROPIONATE [Suspect]
     Indication: RASH PRURITIC
     Dosage: AS NEEDED AS NEEDED APPLIED TO A SURFACE, USUALLY THE SKIN
     Route: 061
     Dates: start: 20140228, end: 20140301

REACTIONS (4)
  - Product colour issue [None]
  - Product odour abnormal [None]
  - Product substitution issue [None]
  - Drug ineffective [None]
